FAERS Safety Report 17740964 (Version 11)
Quarter: 2023Q4

REPORT INFORMATION
  Report Type: Spontaneous
  Country: US (occurrence: US)
  Receive Date: 20200504
  Receipt Date: 20231121
  Transmission Date: 20240110
  Serious: Yes (Other)
  Sender: FDA-Public Use
  Company Number: US-PFIZER INC-2020177341

PATIENT
  Age: 66 Year
  Sex: Female

DRUGS (1)
  1. XELJANZ XR [Suspect]
     Active Substance: TOFACITINIB CITRATE
     Indication: Rheumatoid arthritis
     Dosage: 11 MG, 1X/DAY
     Route: 048
     Dates: start: 2018

REACTIONS (31)
  - Dislocation of vertebra [Unknown]
  - Renal impairment [Unknown]
  - Nerve compression [Unknown]
  - Back pain [Recovering/Resolving]
  - Hypertension [Unknown]
  - Spinal operation [Unknown]
  - Rotator cuff syndrome [Unknown]
  - Nephropathy [Unknown]
  - Gait inability [Unknown]
  - Condition aggravated [Unknown]
  - Pain in extremity [Unknown]
  - COVID-19 [Unknown]
  - Chest discomfort [Unknown]
  - Muscle tightness [Unknown]
  - Dyspnoea [Unknown]
  - Hepatic enzyme abnormal [Unknown]
  - Gait disturbance [Unknown]
  - Muscular weakness [Unknown]
  - Arthralgia [Not Recovered/Not Resolved]
  - Joint range of motion decreased [Unknown]
  - Glossodynia [Unknown]
  - Urine odour abnormal [Unknown]
  - Fall [Unknown]
  - Contusion [Unknown]
  - Arthritis [Unknown]
  - Balance disorder [Unknown]
  - Muscular weakness [Unknown]
  - Deformity [Unknown]
  - Peripheral swelling [Unknown]
  - Sleep apnoea syndrome [Unknown]
  - Musculoskeletal disorder [Unknown]

NARRATIVE: CASE EVENT DATE: 20210101
